FAERS Safety Report 7673367-9 (Version None)
Quarter: 2011Q3

REPORT INFORMATION
  Report Type: 
  Country: None (occurrence: None)
  Receive Date: 20110810
  Receipt Date: 20110729
  Transmission Date: 20111222
  Serious: Yes (Other)
  Sender: FDA-Public Use
  Company Number: DE-JNJFOC-20110412496

PATIENT
  Age: 73 Year
  Sex: Male
  Weight: 76 kg

DRUGS (4)
  1. SIMPONI [Suspect]
     Indication: ANKYLOSING SPONDYLITIS
     Route: 058
     Dates: start: 20091101, end: 20101001
  2. MESALAMINE [Concomitant]
     Indication: COLITIS
     Dosage: ^500 MG 1-1-1^
  3. VALORON N [Concomitant]
  4. OMEPRAZOLE [Concomitant]
     Dosage: ^1-0-1^

REACTIONS (2)
  - ANKYLOSING SPONDYLITIS [None]
  - COLITIS ULCERATIVE [None]
